FAERS Safety Report 5020789-0 (Version None)
Quarter: 2006Q2

REPORT INFORMATION
  Report Type: 
  Country: None (occurrence: None)
  Receive Date: 20060608
  Receipt Date: 20060516
  Transmission Date: 20061013
  Serious: Yes (Other)
  Sender: FDA-Public Use
  Company Number: PHEH2006US06488

PATIENT
  Age: 88 Year
  Sex: Female

DRUGS (2)
  1. GENTEAL MILD LUBRICANT EYE DROPS (NVO) [Suspect]
     Indication: DRY EYE
     Dosage: 1 GTT, QID
     Dates: start: 19960101
  2. GENTEAL MODERATE LUBRICANT EYE DROPS (NVO) [Suspect]
     Indication: DRY EYE
     Dosage: 1 GTT, QID
     Dates: start: 19960101

REACTIONS (1)
  - EYE OPERATION [None]
